FAERS Safety Report 18933409 (Version 3)
Quarter: 2021Q3

REPORT INFORMATION
  Report Type: Other
  Country: US (occurrence: US)
  Receive Date: 20210224
  Receipt Date: 20210802
  Transmission Date: 20211014
  Serious: Yes (Hospitalization, Other)
  Sender: FDA-Public Use
  Company Number: US-ROCHE-2678047

PATIENT
  Age: 78 Year
  Sex: Female
  Weight: 64.01 kg

DRUGS (29)
  1. ACETAMINOPHEN. [Concomitant]
     Active Substance: ACETAMINOPHEN
  2. CLONAZEPAM. [Concomitant]
     Active Substance: CLONAZEPAM
     Route: 048
  3. BABY ASPIRIN [Concomitant]
     Active Substance: ASPIRIN
     Dosage: ONGOING UNKNOWN
     Route: 048
     Dates: start: 202104
  4. POLYETHYLENE GLYCOL 3350. [Concomitant]
     Active Substance: POLYETHYLENE GLYCOL 3350
  5. METHYLPREDNISOLONE SODIUM SUCCINATE. [Concomitant]
     Active Substance: METHYLPREDNISOLONE SODIUM SUCCINATE
     Route: 042
  6. UMECLIDINIUM [Concomitant]
     Active Substance: UMECLIDINIUM BROMIDE
     Dosage: INHALE 62.5 MCG EVERY MORNING ONE INHALATION IN AM RINSE MOUTH AFTER USE
     Route: 045
  7. SPIRIVA RESPIMAT [Concomitant]
     Active Substance: TIOTROPIUM BROMIDE
     Dosage: ONGOING UNKNOWN
     Route: 055
     Dates: start: 202105
  8. OCREVUS [Suspect]
     Active Substance: OCRELIZUMAB
     Indication: RELAPSING-REMITTING MULTIPLE SCLEROSIS
     Dosage: 600 UNITS NOT REPORTED
     Route: 042
     Dates: start: 201909
  9. EFFEXOR [Concomitant]
     Active Substance: VENLAFAXINE HYDROCHLORIDE
     Indication: ANXIETY
     Dosage: ONGOING UNKNOWN
     Dates: start: 202106
  10. LEVOTHYROXINE SODIUM. [Concomitant]
     Active Substance: LEVOTHYROXINE SODIUM
  11. ROSUVASTATIN. [Concomitant]
     Active Substance: ROSUVASTATIN
     Dosage: ONGOING UNKNOWN
     Route: 048
     Dates: start: 202104
  12. CITALOPRAM [Concomitant]
     Active Substance: CITALOPRAM HYDROBROMIDE
  13. LORATADINE. [Concomitant]
     Active Substance: LORATADINE
     Indication: HYPERSENSITIVITY
     Dosage: ONGOING UNKNOWN
     Route: 048
     Dates: start: 2019
  14. MONTELUKAST [Concomitant]
     Active Substance: MONTELUKAST SODIUM
     Indication: ASTHMA
     Dosage: ONGOING UNKNOWN
     Route: 048
     Dates: start: 2017
  15. ROSUVASTATIN. [Concomitant]
     Active Substance: ROSUVASTATIN
     Indication: BLOOD CHOLESTEROL
     Dosage: ONGOING NO
     Route: 048
     Dates: start: 2017
  16. SPIRIVA RESPIMAT [Concomitant]
     Active Substance: TIOTROPIUM BROMIDE
     Dosage: TWO PUFFS ONCE PER DAY?ONGOING NO
     Route: 055
  17. PRESERVISION [Concomitant]
     Active Substance: MINERALS\VITAMINS
     Indication: MACULAR DEGENERATION
     Dosage: ONGOING UNKNOWN
     Dates: start: 2015
  18. ALBUTEROL SULFATE. [Concomitant]
     Active Substance: ALBUTEROL SULFATE
     Indication: DYSPNOEA
  19. BUTALBITAL [Concomitant]
     Active Substance: BUTALBITAL
  20. CAFFEINE. [Concomitant]
     Active Substance: CAFFEINE
  21. ALBUTEROL. [Concomitant]
     Active Substance: ALBUTEROL
     Dosage: ONGOING UNKNOWN
     Route: 055
  22. VITAMIN D3 [Concomitant]
     Active Substance: CHOLECALCIFEROL
  23. VITAMIN D3 [Concomitant]
     Active Substance: CHOLECALCIFEROL
  24. PREDNISONE. [Concomitant]
     Active Substance: PREDNISONE
     Dosage: 6 TABLETS A DAY IN 5 DAYS THEN DECREASE BY 1 TAB EVERY 2 DAYS UNTIL OFF
  25. SYNTHROID [Concomitant]
     Active Substance: LEVOTHYROXINE SODIUM
     Indication: HYPOTHYROIDISM
     Dosage: ONGOING UNKNOWN?SIX DAYS A WEEK
  26. OCREVUS [Suspect]
     Active Substance: OCRELIZUMAB
     Route: 042
     Dates: start: 2020
  27. ALBUTEROL SULFATE. [Concomitant]
     Active Substance: ALBUTEROL SULFATE
     Indication: WHEEZING
     Dosage: 90 MCG/ACTUATION
  28. FLUTICASONE PROPIONATE. [Concomitant]
     Active Substance: FLUTICASONE PROPIONATE
     Dosage: USE 2 SPRAYS ONCE A DAY PRN IN EACH NOSTRIL
     Route: 045
  29. CRESTOR [Concomitant]
     Active Substance: ROSUVASTATIN CALCIUM
     Route: 048

REACTIONS (6)
  - Insomnia [Not Recovered/Not Resolved]
  - Weight increased [Recovering/Resolving]
  - Multiple sclerosis relapse [Unknown]
  - Facial paralysis [Recovered/Resolved]
  - COVID-19 [Not Recovered/Not Resolved]
  - Squamous cell carcinoma [Recovered/Resolved]

NARRATIVE: CASE EVENT DATE: 20201225
